FAERS Safety Report 8309191-3 (Version None)
Quarter: 2012Q2

REPORT INFORMATION
  Report Type: 
  Country: None (occurrence: None)
  Receive Date: 20120424
  Receipt Date: 20120319
  Transmission Date: 20120825
  Serious: Yes (Other)
  Sender: FDA-Public Use
  Company Number: FR-BAXTER-2012BAX000062

PATIENT
  Sex: Female

DRUGS (13)
  1. KIOVIG [Suspect]
     Indication: DERMATOMYOSITIS
     Dosage: 20G/200ML 2VIALS
     Route: 042
     Dates: start: 20120206, end: 20120210
  2. PREDNISONE TAB [Concomitant]
  3. CACIT D3 [Concomitant]
  4. AMLODIPINE BESYLATE [Concomitant]
  5. METHOTREXATE [Concomitant]
     Dosage: EACH FRIDAY
  6. TIMACOR [Concomitant]
  7. POLYETHYLENE GLYCOL [Concomitant]
     Route: 048
  8. FOLIC ACID [Concomitant]
     Dosage: 2CP
     Route: 048
  9. KIOVIG [Suspect]
     Dosage: 10G/100ML 2VIALS
     Route: 042
     Dates: start: 20120206, end: 20120210
  10. KIOVIG [Suspect]
     Dosage: 20/200ML 3 VIALS
     Route: 042
     Dates: start: 20120305, end: 20120308
  11. KIOVIG [Suspect]
     Dosage: 10/100ML
     Dates: start: 20120305, end: 20120308
  12. FENOFIBRATE [Concomitant]
  13. TRAMADOL CHLORHYDRATE [Concomitant]

REACTIONS (1)
  - NEUTROPENIA [None]
